FAERS Safety Report 7604501-4 (Version None)
Quarter: 2011Q3

REPORT INFORMATION
  Report Type: 
  Country: None (occurrence: None)
  Receive Date: 20110712
  Receipt Date: 20110630
  Transmission Date: 20111222
  Serious: Yes (Other)
  Sender: FDA-Public Use
  Company Number: CA-JNJFOC-20110701811

PATIENT
  Sex: Male
  Weight: 103.5 kg

DRUGS (5)
  1. IMURAN [Concomitant]
     Route: 048
  2. REMICADE [Suspect]
     Indication: COLITIS ULCERATIVE
     Route: 042
     Dates: start: 20110429
  3. INSULIN [Concomitant]
     Indication: DIABETES MELLITUS
  4. REMICADE [Suspect]
     Route: 042
     Dates: start: 20110630
  5. REMICADE [Suspect]
     Route: 042
     Dates: start: 20100601

REACTIONS (2)
  - CROHN'S DISEASE [None]
  - HEADACHE [None]
